FAERS Safety Report 4407565-4 (Version None)
Quarter: 2004Q3

REPORT INFORMATION
  Report Type: 
  Country: None (occurrence: None)
  Receive Date: 20040721
  Receipt Date: 20040709
  Transmission Date: 20050211
  Serious: Yes (Hospitalization)
  Sender: FDA-Public Use
  Company Number: 04P-056-0266592-00

PATIENT
  Age: 36 Year
  Sex: Male

DRUGS (4)
  1. VALPROATE SODIUM [Suspect]
     Indication: INTENTIONAL OVERDOSE
     Dosage: MORE THAN 60 MG, ONCE
  2. VALPROATE SODIUM [Suspect]
     Indication: SUICIDE ATTEMPT
     Dosage: MORE THAN 60 MG, ONCE
  3. TOPIRMATE [Concomitant]
  4. CARBAMAZEPINE [Concomitant]

REACTIONS (14)
  - BRAIN OEDEMA [None]
  - BRAIN STEM SYNDROME [None]
  - CONVULSION [None]
  - DECEREBRATION [None]
  - ELECTROENCEPHALOGRAM ABNORMAL [None]
  - GLASGOW COMA SCALE ABNORMAL [None]
  - HAEMODIALYSIS [None]
  - INTENTIONAL OVERDOSE [None]
  - INTRACRANIAL INJURY [None]
  - REFLEXES ABNORMAL [None]
  - RESPIRATORY DISTRESS [None]
  - SOMNOLENCE [None]
  - SUICIDE ATTEMPT [None]
  - THROMBOCYTOPENIA [None]
